FAERS Safety Report 21859402 (Version 1)
Quarter: 2023Q1

REPORT INFORMATION
  Report Type: Spontaneous
  Country: FR (occurrence: FR)
  Receive Date: 20230113
  Receipt Date: 20230113
  Transmission Date: 20230418
  Serious: Yes (Hospitalization)
  Sender: FDA-Public Use
  Company Number: None

PATIENT
  Age: 70 Year
  Sex: Female
  Weight: 62 kg

DRUGS (6)
  1. CIPROFLOXACIN [Suspect]
     Active Substance: CIPROFLOXACIN
     Indication: Antibiotic therapy
     Dosage: UNK
     Route: 048
     Dates: start: 20200623, end: 20200714
  2. PRISTINAMYCIN [Suspect]
     Active Substance: PRISTINAMYCIN
     Indication: Antibiotic therapy
     Dosage: UNK
     Route: 048
     Dates: start: 20200608, end: 20200621
  3. RIFAMPIN [Suspect]
     Active Substance: RIFAMPIN
     Indication: Antibiotic therapy
     Dosage: UNK
     Route: 048
     Dates: start: 20200623, end: 20200710
  4. LEVOTHYROXINE [Concomitant]
     Active Substance: LEVOTHYROXINE
     Indication: Basedow^s disease
  5. IRBESARTAN [Concomitant]
     Active Substance: IRBESARTAN
     Indication: Hypertension
  6. CRESTOR [Concomitant]
     Active Substance: ROSUVASTATIN CALCIUM
     Indication: Product used for unknown indication

REACTIONS (1)
  - Drug reaction with eosinophilia and systemic symptoms [Recovered/Resolved]

NARRATIVE: CASE EVENT DATE: 20200706
